FAERS Safety Report 18745604 (Version 2)
Quarter: 2021Q1

REPORT INFORMATION
  Report Type: Spontaneous
  Country: GB (occurrence: GB)
  Receive Date: 20210115
  Receipt Date: 20210218
  Transmission Date: 20210419
  Serious: Yes (Other)
  Sender: FDA-Public Use
  Company Number: IT-SUNOVION-2021SUN000096

PATIENT
  Sex: Female

DRUGS (2)
  1. LATUDA [Suspect]
     Active Substance: LURASIDONE HYDROCHLORIDE
     Indication: SCHIZOPHRENIA
     Dosage: UNK
     Route: 048
  2. GLICLAZIDE [Concomitant]
     Active Substance: GLICLAZIDE

REACTIONS (13)
  - Gait inability [Not Recovered/Not Resolved]
  - Musculoskeletal discomfort [Not Recovered/Not Resolved]
  - Chest discomfort [Not Recovered/Not Resolved]
  - Dizziness [Not Recovered/Not Resolved]
  - Cognitive disorder [Not Recovered/Not Resolved]
  - Pain [Not Recovered/Not Resolved]
  - Drug ineffective [Not Recovered/Not Resolved]
  - Muscle spasms [Not Recovered/Not Resolved]
  - Memory impairment [Not Recovered/Not Resolved]
  - Bradyphrenia [Not Recovered/Not Resolved]
  - Dyspnoea [Not Recovered/Not Resolved]
  - Suicidal ideation [Not Recovered/Not Resolved]
  - Neck pain [Not Recovered/Not Resolved]
